FAERS Safety Report 7419074-9 (Version None)
Quarter: 2011Q2

REPORT INFORMATION
  Report Type: 
  Country: None (occurrence: None)
  Receive Date: 20110415
  Receipt Date: 20110412
  Transmission Date: 20111010
  Serious: Yes (Hospitalization)
  Sender: FDA-Public Use
  Company Number: PHHO2011DE06482

PATIENT
  Sex: Male
  Weight: 109 kg

DRUGS (4)
  1. SANDIMMUNE [Suspect]
     Dosage: 175 MG, BID
     Route: 048
     Dates: start: 20100426
  2. SANDIMMUNE [Suspect]
     Indication: RENAL TRANSPLANT
     Dosage: 300 MG, BID
     Route: 048
     Dates: start: 20090929, end: 20090929
  3. EVEROLIMUS [Suspect]
     Indication: RENAL TRANSPLANT
     Dosage: 1.5 MG, BID
     Route: 048
     Dates: start: 20091230
  4. URBASON [Concomitant]
     Indication: RENAL TRANSPLANT

REACTIONS (1)
  - SHUNT OCCLUSION [None]
